FAERS Safety Report 8347804 (Version 4)
Quarter: 2022Q2

REPORT INFORMATION
  Report Type: Report from Study
  Country: PL (occurrence: PL)
  Receive Date: 20120123
  Receipt Date: 20220404
  Transmission Date: 20220721
  Serious: No
  Sender: FDA-Public Use
  Company Number: PHHO2012PL001256

PATIENT
  Age: 9 Year
  Weight: 24.3 kg

DRUGS (1)
  1. SOMATROPIN [Suspect]
     Active Substance: SOMATROPIN
     Indication: Growth disorder
     Dosage: 0.85 MG, QD
     Route: 058
     Dates: start: 20080623, end: 20111009

REACTIONS (1)
  - No adverse event [Unknown]
